FAERS Safety Report 17802866 (Version 1)
Quarter: 2020Q2

REPORT INFORMATION
  Report Type: Spontaneous
  Country: US (occurrence: US)
  Receive Date: 20200519
  Receipt Date: 20200519
  Transmission Date: 20200714
  Serious: No
  Sender: FDA-Public Use
  Company Number: US-009507513-2005USA004906

PATIENT
  Sex: Female

DRUGS (1)
  1. NEXPLANON [Suspect]
     Active Substance: ETONOGESTREL
     Indication: CONTRACEPTION
     Dosage: 1 IMPLANT (68 MG); FREQUENCY REPORTED AS DAILY; ROUTE REPORTED AS INTRA-UTERINE
     Dates: start: 20181012, end: 20200514

REACTIONS (2)
  - Menorrhagia [Unknown]
  - Dysmenorrhoea [Unknown]
